FAERS Safety Report 11224187 (Version 1)
Quarter: 2015Q2

REPORT INFORMATION
  Report Type: Not Available
  Country: US (occurrence: US)
  Receive Date: 20150629
  Receipt Date: 20150629
  Transmission Date: 20150821
  Serious: No
  Sender: FDA-Public Use
  Company Number: US-LUPIN PHARMACEUTICALS INC.-E2B_00003760

PATIENT
  Sex: Male
  Weight: 86.26 kg

DRUGS (3)
  1. NIACIN EXTENDED-RELEASE TABLET USP, 1000 MG [Suspect]
     Active Substance: NIACIN
     Indication: HYPERCHOLESTEROLAEMIA
     Dosage: 1000MG
     Dates: start: 2014, end: 2014
  2. NIACIN EXTENDED-RELEASE TABLET USP, 750 MG [Suspect]
     Active Substance: NIACIN
     Indication: HYPERCHOLESTEROLAEMIA
     Dates: start: 2014
  3. ATORVASTATIN [Concomitant]
     Active Substance: ATORVASTATIN
     Indication: PRODUCT USED FOR UNKNOWN INDICATION
     Route: 065

REACTIONS (3)
  - Drug ineffective [Unknown]
  - Medication residue present [Unknown]
  - Blood triglycerides increased [Not Recovered/Not Resolved]

NARRATIVE: CASE EVENT DATE: 2014
